FAERS Safety Report 17689956 (Version 3)
Quarter: 2021Q2

REPORT INFORMATION
  Report Type: Spontaneous
  Country: US (occurrence: US)
  Receive Date: 20200421
  Receipt Date: 20210416
  Transmission Date: 20210716
  Serious: Yes (Other)
  Sender: FDA-Public Use
  Company Number: US-ASTRAZENECA-2020SE51888

PATIENT
  Age: 47 Year
  Sex: Female
  Weight: 91.6 kg

DRUGS (16)
  1. DRISDOL [Concomitant]
     Active Substance: ERGOCALCIFEROL
  2. CALCITROL [Concomitant]
  3. PRILOSEC OTC [Suspect]
     Active Substance: OMEPRAZOLE MAGNESIUM
     Route: 048
     Dates: start: 201301, end: 201501
  4. RENVELA [Concomitant]
     Active Substance: SEVELAMER CARBONATE
  5. TOPROL XL [Concomitant]
     Active Substance: METOPROLOL SUCCINATE
  6. NOVOLIN NOS [Concomitant]
     Active Substance: INSULIN HUMAN
  7. HYDRALAZINE [Concomitant]
     Active Substance: HYDRALAZINE HYDROCHLORIDE
  8. PROTONIX [Suspect]
     Active Substance: PANTOPRAZOLE SODIUM
     Indication: GASTROOESOPHAGEAL REFLUX DISEASE
     Route: 065
     Dates: start: 201301, end: 201501
  9. CYCLOBENZAPRINE. [Concomitant]
     Active Substance: CYCLOBENZAPRINE
  10. ASPIRIN. [Concomitant]
     Active Substance: ASPIRIN
  11. TUMS [Concomitant]
     Active Substance: CALCIUM CARBONATE
  12. GABAPENTIN. [Concomitant]
     Active Substance: GABAPENTIN
  13. LASIX [Concomitant]
     Active Substance: FUROSEMIDE
  14. DILTIAZEM. [Concomitant]
     Active Substance: DILTIAZEM
  15. METOPROLOL. [Concomitant]
     Active Substance: METOPROLOL
  16. LOSARTAN. [Concomitant]
     Active Substance: LOSARTAN

REACTIONS (5)
  - Chronic kidney disease [Not Recovered/Not Resolved]
  - Hyperparathyroidism secondary [Unknown]
  - Acute kidney injury [Not Recovered/Not Resolved]
  - End stage renal disease [Not Recovered/Not Resolved]
  - Nephrogenic anaemia [Unknown]

NARRATIVE: CASE EVENT DATE: 2015
